FAERS Safety Report 15451384 (Version 1)
Quarter: 2018Q3

REPORT INFORMATION
  Report Type: Spontaneous
  Country: US (occurrence: US)
  Receive Date: 20180927
  Receipt Date: 20180927
  Transmission Date: 20181010
  Serious: Yes (Hospitalization, Disabling)
  Sender: FDA-Public Use
  Company Number: None

PATIENT
  Age: 69 Year
  Sex: Male
  Weight: 138.35 kg

DRUGS (20)
  1. LANTUS [Concomitant]
     Active Substance: INSULIN GLARGINE
  2. HUMALOG [Concomitant]
     Active Substance: INSULIN LISPRO
  3. HYDRALAZINE [Concomitant]
     Active Substance: HYDRALAZINE HYDROCHLORIDE
  4. ISOSORBIDE. [Concomitant]
     Active Substance: ISOSORBIDE
  5. CLOPIDOGREL [Concomitant]
     Active Substance: CLOPIDOGREL BISULFATE
  6. SPIRONOLACTONE. [Concomitant]
     Active Substance: SPIRONOLACTONE
  7. LEVOTHYROXINE. [Concomitant]
     Active Substance: LEVOTHYROXINE
  8. ATORVASTATIN [Concomitant]
     Active Substance: ATORVASTATIN
  9. TEMAZEPAM. [Concomitant]
     Active Substance: TEMAZEPAM
  10. CALCITRIAL [Concomitant]
  11. VIT B?12 [Concomitant]
  12. PANTOPRAZOLE [Concomitant]
     Active Substance: PANTOPRAZOLE
  13. CHROMIUM PIOATNATE [Concomitant]
  14. TORSEMIDE. [Concomitant]
     Active Substance: TORSEMIDE
  15. ENTRESTO [Suspect]
     Active Substance: SACUBITRIL\VALSARTAN
     Indication: CARDIAC DISORDER
     Route: 048
     Dates: start: 20180504, end: 20180616
  16. CINNAMON. [Concomitant]
     Active Substance: CINNAMON
  17. LOSARTAN. [Concomitant]
     Active Substance: LOSARTAN
  18. METOPROLOL. [Concomitant]
     Active Substance: METOPROLOL
  19. AMIODARONE [Concomitant]
     Active Substance: AMIODARONE
  20. MIRALAX [Concomitant]
     Active Substance: POLYETHYLENE GLYCOL 3350

REACTIONS (3)
  - Weight increased [None]
  - Cardiac failure congestive [None]
  - Renal failure [None]
